FAERS Safety Report 7629461-1 (Version None)
Quarter: 2011Q3

REPORT INFORMATION
  Report Type: 
  Country: None (occurrence: None)
  Receive Date: 20110722
  Receipt Date: 20110713
  Transmission Date: 20111222
  Serious: Yes (Other)
  Sender: FDA-Public Use
  Company Number: US-AMGEN-USASP2011035702

PATIENT
  Age: 62 Year
  Sex: Female

DRUGS (4)
  1. METHOTREXATE [Concomitant]
  2. PREDNISONE [Concomitant]
  3. PROLIA [Suspect]
     Indication: OSTEOPOROSIS POSTMENOPAUSAL
     Dosage: 60 MG, Q6MO
     Dates: start: 20110615
  4. HYDROXYCHLOROQUINE SULFATE [Concomitant]

REACTIONS (2)
  - BACK PAIN [None]
  - COMPRESSION FRACTURE [None]
